FAERS Safety Report 11191622 (Version 3)
Quarter: 2015Q4

REPORT INFORMATION
  Report Type: Report from Study
  Country: US (occurrence: US)
  Receive Date: 20150616
  Receipt Date: 20151009
  Transmission Date: 20160304
  Serious: Yes (Hospitalization)
  Sender: FDA-Public Use
  Company Number: US-AMGEN-USASP2015057259

PATIENT
  Age: 68 Year
  Sex: Female

DRUGS (1)
  1. ENBREL [Suspect]
     Active Substance: ETANERCEPT
     Indication: RHEUMATOID ARTHRITIS
     Dosage: 50 MG, QWK
     Route: 065
     Dates: start: 20071019, end: 2015

REACTIONS (13)
  - Gait disturbance [Not Recovered/Not Resolved]
  - Skin ulcer [Recovered/Resolved]
  - Back pain [Not Recovered/Not Resolved]
  - Herpes zoster [Recovered/Resolved]
  - Bacterial infection [Unknown]
  - Arthralgia [Recovering/Resolving]
  - Hernia [Not Recovered/Not Resolved]
  - Vomiting [Recovered/Resolved]
  - Tooth infection [Recovered/Resolved]
  - Haemoptysis [Recovered/Resolved]
  - Pneumonia [Recovered/Resolved]
  - Feeling abnormal [Recovered/Resolved]
  - Pain [Not Recovered/Not Resolved]

NARRATIVE: CASE EVENT DATE: 201412
